FAERS Safety Report 9516710 (Version 3)
Quarter: 2013Q4

REPORT INFORMATION
  Report Type: Spontaneous
  Country: BR (occurrence: BR)
  Receive Date: 20130911
  Receipt Date: 20131007
  Transmission Date: 20140711
  Serious: Yes (Hospitalization, Other)
  Sender: FDA-Public Use
  Company Number: BR-ELI_LILLY_AND_COMPANY-BR201308009804

PATIENT
  Age: 68 Year
  Sex: Female
  Weight: 80 kg

DRUGS (5)
  1. HUMALOG MIX 50 [Suspect]
     Indication: TYPE 2 DIABETES MELLITUS
     Dosage: 18 IU, QD
     Route: 058
     Dates: start: 201209
  2. HUMALOG MIX 50 [Suspect]
     Dosage: 28 IU, QD
     Route: 058
     Dates: start: 201209
  3. HUMALOG MIX 50 [Suspect]
     Dosage: 28 IU, QD
     Route: 058
     Dates: start: 201209
  4. COVERSYL PLUS [Concomitant]
     Indication: HYPERTENSION
     Dosage: UNK UNK, UNKNOWN
     Route: 065
  5. RASILEZ [Concomitant]
     Indication: HYPERTENSION
     Dosage: UNK, UNKNOWN
     Route: 065

REACTIONS (5)
  - Upper limb fracture [Recovering/Resolving]
  - Fall [Recovering/Resolving]
  - Injection site pain [Not Recovered/Not Resolved]
  - Injection site injury [Not Recovered/Not Resolved]
  - Drug dose omission [Unknown]
